FAERS Safety Report 10237488 (Version 2)
Quarter: 2014Q2

REPORT INFORMATION
  Report Type: Spontaneous
  Country: GR (occurrence: GR)
  Receive Date: 20140615
  Receipt Date: 20140619
  Transmission Date: 20141212
  Serious: Yes (Death, Hospitalization)
  Sender: FDA-Public Use
  Company Number: GR-BRISTOL-MYERS SQUIBB COMPANY-20973699

PATIENT
  Sex: Male

DRUGS (3)
  1. ELIQUIS [Suspect]
     Route: 048
  2. PLAVIX [Suspect]
  3. SALOSPIR [Suspect]

REACTIONS (3)
  - Gastric haemorrhage [Fatal]
  - Cerebrovascular accident [Unknown]
  - Angina pectoris [Unknown]
